FAERS Safety Report 5320445-5 (Version None)
Quarter: 2007Q2

REPORT INFORMATION
  Report Type: 
  Country: None (occurrence: None)
  Receive Date: 20070509
  Receipt Date: 20070427
  Transmission Date: 20071010
  Serious: Yes (Disabling)
  Sender: FDA-Public Use
  Company Number: CA-SANOFI-SYNTHELABO-A01200704602

PATIENT
  Age: 30 Year
  Sex: Female

DRUGS (1)
  1. PETHIDINE [Suspect]
     Indication: ARTHRALGIA
     Route: 030

REACTIONS (2)
  - MYOPATHY [None]
  - NEUROPATHY PERIPHERAL [None]
